FAERS Safety Report 12081657 (Version 2)
Quarter: 2016Q2

REPORT INFORMATION
  Report Type: Spontaneous
  Country: US (occurrence: US)
  Receive Date: 20160216
  Receipt Date: 20160408
  Transmission Date: 20160815
  Serious: No
  Sender: FDA-Public Use
  Company Number: US-009507513-1602USA007660

PATIENT
  Age: 25 Year
  Sex: Female
  Weight: 58.96 kg

DRUGS (1)
  1. NUVARING [Suspect]
     Active Substance: ETHINYL ESTRADIOL\ETONOGESTREL
     Indication: CONTRACEPTION
     Dosage: 1 RING 3 WEEKS IN WITH 1 RING FREE WEEK, QM
     Route: 067
     Dates: start: 2014, end: 2016

REACTIONS (5)
  - Mood altered [Recovered/Resolved]
  - Irritability [Recovered/Resolved]
  - Premenstrual syndrome [Recovered/Resolved]
  - Depressed mood [Recovered/Resolved]
  - Anger [Recovered/Resolved]

NARRATIVE: CASE EVENT DATE: 2015
